FAERS Safety Report 5005527-X (Version None)
Quarter: 2006Q2

REPORT INFORMATION
  Report Type: 
  Country: None (occurrence: None)
  Receive Date: 20060518
  Receipt Date: 20060217
  Transmission Date: 20061013
  Serious: Yes (Hospitalization)
  Sender: FDA-Public Use
  Company Number: US-MERCK-0602USA04801

PATIENT
  Age: 51 Year
  Sex: Male
  Weight: 111 kg

DRUGS (3)
  1. VIOXX [Suspect]
     Indication: BACK PAIN
     Route: 048
     Dates: start: 20000101, end: 20030802
  2. VIOXX [Suspect]
     Indication: TRIGGER FINGER
     Route: 048
     Dates: start: 20000101, end: 20030802
  3. ALEVE (CAPLET) [Concomitant]
     Route: 065

REACTIONS (5)
  - CEREBROVASCULAR ACCIDENT [None]
  - INTERVERTEBRAL DISC PROTRUSION [None]
  - MENISCUS LESION [None]
  - NERVOUS SYSTEM DISORDER [None]
  - TENDONITIS [None]
